FAERS Safety Report 4465054-5 (Version None)
Quarter: 2004Q3

REPORT INFORMATION
  Report Type: 
  Country: None (occurrence: None)
  Receive Date: 20040928
  Receipt Date: 20040928
  Transmission Date: 20050211
  Serious: Yes (Hospitalization)
  Sender: FDA-Public Use
  Company Number: None

PATIENT
  Age: 41 Year
  Sex: Female
  Weight: 59.9 kg

DRUGS (3)
  1. DEPAKOTE ER [Suspect]
     Indication: BIPOLAR DISORDER
     Dosage: 500MG  TID  ORAL
     Route: 048
     Dates: start: 20030101, end: 20040811
  2. HTN [Concomitant]
  3. COCAINE ABUSE [Concomitant]

REACTIONS (3)
  - DIZZINESS [None]
  - DRUG LEVEL INCREASED [None]
  - SOMNOLENCE [None]
